FAERS Safety Report 8205255-3 (Version None)
Quarter: 2012Q1

REPORT INFORMATION
  Report Type: 
  Country: None (occurrence: None)
  Receive Date: 20120313
  Receipt Date: 20120216
  Transmission Date: 20120608
  Serious: Yes (Hospitalization)
  Sender: FDA-Public Use
  Company Number: US-ROCHE-777526

PATIENT
  Sex: Female
  Weight: 58.6 kg

DRUGS (1)
  1. VISMODEGIB [Suspect]
     Indication: BASAL CELL CARCINOMA
     Dosage: 150 UNK, QD
     Route: 048
     Dates: start: 20091029, end: 20110502

REACTIONS (1)
  - OSTEOMYELITIS [None]
